FAERS Safety Report 10435593 (Version 2)
Quarter: 2014Q3

REPORT INFORMATION
  Report Type: Spontaneous
  Country: BR (occurrence: BR)
  Receive Date: 20140908
  Receipt Date: 20140916
  Transmission Date: 20150326
  Serious: Yes (Hospitalization, Other)
  Sender: FDA-Public Use
  Company Number: BR-AMGEN-BRASP2014068146

PATIENT
  Age: 71 Year
  Sex: Male

DRUGS (2)
  1. ARAVA [Concomitant]
     Active Substance: LEFLUNOMIDE
     Dosage: UNK
  2. ENBREL [Suspect]
     Active Substance: ETANERCEPT
     Indication: RHEUMATOID ARTHRITIS
     Dosage: UNK
     Route: 065
     Dates: start: 201405

REACTIONS (8)
  - Hypertensive crisis [Unknown]
  - Renal failure [Not Recovered/Not Resolved]
  - Peripheral swelling [Unknown]
  - Abasia [Unknown]
  - Cardiovascular disorder [Unknown]
  - Somnolence [Not Recovered/Not Resolved]
  - Asthenia [Unknown]
  - Skin discolouration [Unknown]

NARRATIVE: CASE EVENT DATE: 2014
